FAERS Safety Report 15809862 (Version 1)
Quarter: 2019Q1

REPORT INFORMATION
  Report Type: Spontaneous
  Country: US (occurrence: US)
  Receive Date: 20190111
  Receipt Date: 20190111
  Transmission Date: 20190417
  Serious: Yes (Hospitalization)
  Sender: FDA-Public Use
  Company Number: US-ROCHE-2085231

PATIENT
  Age: 62 Year
  Sex: Female

DRUGS (2)
  1. OXYGEN. [Concomitant]
     Active Substance: OXYGEN
     Dosage: YES
     Route: 065
  2. RITUXAN [Suspect]
     Active Substance: RITUXIMAB
     Indication: RHEUMATOID ARTHRITIS
     Route: 065
     Dates: start: 2017

REACTIONS (2)
  - Dyspnoea [Unknown]
  - Pneumocystis jirovecii infection [Unknown]
